FAERS Safety Report 5417008-X (Version None)
Quarter: 2007Q3

REPORT INFORMATION
  Report Type: 
  Country: None (occurrence: None)
  Receive Date: 20070718
  Receipt Date: 20070108
  Transmission Date: 20080115
  Serious: Yes (Other)
  Sender: FDA-Public Use
  Company Number: 2006059982

PATIENT
  Age: 66 Year
  Sex: Female
  Weight: 68 kg

DRUGS (3)
  1. CELEBREX [Suspect]
     Indication: ARTHRITIS
     Dosage: 400 MG (200 MG,2 IN 1 D)
     Dates: start: 20031118
  2. CELEBREX [Suspect]
     Indication: BACK PAIN
     Dosage: 400 MG (200 MG,2 IN 1 D)
     Dates: start: 20031118
  3. CELEBREX [Suspect]
     Indication: PAIN IN EXTREMITY
     Dosage: 400 MG (200 MG,2 IN 1 D)
     Dates: start: 20031118

REACTIONS (1)
  - CEREBROVASCULAR ACCIDENT [None]
